FAERS Safety Report 5014765-1 (Version None)
Quarter: 2006Q2

REPORT INFORMATION
  Report Type: 
  Country: None (occurrence: None)
  Receive Date: 20060531
  Receipt Date: 20051019
  Transmission Date: 20061013
  Serious: Yes (Hospitalization, Other)
  Sender: FDA-Public Use
  Company Number: JP-BRACCO-BRO-009138

PATIENT
  Sex: Male

DRUGS (2)
  1. IOPAMIRON [Suspect]
     Route: 042
     Dates: start: 20051003, end: 20051003
  2. IOPAMIRON [Suspect]
     Route: 042
     Dates: start: 20051003, end: 20051003

REACTIONS (24)
  - ACUTE PULMONARY OEDEMA [None]
  - ACUTE RESPIRATORY DISTRESS SYNDROME [None]
  - ALCOHOLIC LIVER DISEASE [None]
  - ANTITHROMBIN III DECREASED [None]
  - ATRIAL FIBRILLATION [None]
  - ATRIAL THROMBOSIS [None]
  - BLOOD FIBRINOGEN INCREASED [None]
  - BLOOD GLUCOSE INCREASED [None]
  - CEREBRAL INFARCTION [None]
  - CYANOSIS [None]
  - DEPRESSED LEVEL OF CONSCIOUSNESS [None]
  - DIABETES MELLITUS [None]
  - DYSPNOEA [None]
  - HEPATIC CIRRHOSIS [None]
  - HYPERCAPNIA [None]
  - JAUNDICE [None]
  - MOVEMENT DISORDER [None]
  - OPPORTUNISTIC INFECTION [None]
  - PARESIS [None]
  - PNEUMONIA ASPERGILLUS [None]
  - PROTHROMBIN TIME SHORTENED [None]
  - SEDATION [None]
  - STRIDOR [None]
  - WHEEZING [None]
